FAERS Safety Report 4308222-5 (Version None)
Quarter: 2004Q1

REPORT INFORMATION
  Report Type: 
  Country: None (occurrence: None)
  Receive Date: 20040301
  Receipt Date: 20030829
  Transmission Date: 20041129
  Serious: No
  Sender: FDA-Public Use
  Company Number: US-BRISTOL-MYERS SQUIBB COMPANY-12370755

PATIENT
  Age: 36 Year
  Sex: Female
  Weight: 154 kg

DRUGS (5)
  1. GLUCOPHAGE [Suspect]
     Indication: POLYCYSTIC OVARIES
     Route: 048
     Dates: start: 20030401
  2. ALTACE [Concomitant]
  3. ORTHO-NOVUM [Concomitant]
     Dates: end: 20030604
  4. PROVERA [Concomitant]
     Dates: start: 20030807, end: 20030814
  5. PREVACID [Concomitant]

REACTIONS (5)
  - BLOOD INSULIN INCREASED [None]
  - DIZZINESS [None]
  - LOOSE STOOLS [None]
  - STOOL ANALYSIS ABNORMAL [None]
  - WEIGHT INCREASED [None]
